FAERS Safety Report 9184652 (Version 1)
Quarter: 2013Q1

REPORT INFORMATION
  Report Type: Report from Study
  Country: DE (occurrence: DE)
  Receive Date: 20130324
  Receipt Date: 20130324
  Transmission Date: 20140127
  Serious: Yes (Hospitalization)
  Sender: FDA-Public Use
  Company Number: DE-ROCHE-1204944

PATIENT
  Sex: Female

DRUGS (6)
  1. RITUXIMAB [Suspect]
     Indication: RHEUMATOID ARTHRITIS
     Route: 065
     Dates: start: 20080422
  2. METHOTREXATE [Suspect]
     Indication: RHEUMATOID ARTHRITIS
     Route: 048
     Dates: start: 200802
  3. LEFLUNOMID [Concomitant]
     Indication: RHEUMATOID ARTHRITIS
     Route: 065
     Dates: start: 200711, end: 201011
  4. PREDNISOLON [Concomitant]
     Route: 065
     Dates: start: 200611
  5. ACTONEL [Concomitant]
     Route: 065
     Dates: start: 200712
  6. RISPERDAL [Concomitant]

REACTIONS (1)
  - Breast cancer [Not Recovered/Not Resolved]
